FAERS Safety Report 7505211-4 (Version None)
Quarter: 2011Q2

REPORT INFORMATION
  Report Type: 
  Country: None (occurrence: None)
  Receive Date: 20110517
  Receipt Date: 20110509
  Transmission Date: 20111010
  Serious: Yes (Other)
  Sender: FDA-Public Use
  Company Number: 2011SP021449

PATIENT
  Sex: Female

DRUGS (2)
  1. PEG-INTRON [Suspect]
     Indication: HEPATITIS C
  2. RIBAVIRIN [Suspect]
     Indication: HEPATITIS C

REACTIONS (12)
  - CARDIAC FAILURE CONGESTIVE [None]
  - RENAL DISORDER [None]
  - DEPRESSION [None]
  - FATIGUE [None]
  - PLATELET COUNT DECREASED [None]
  - ASTHENIA [None]
  - SLEEP DISORDER [None]
  - HYPERTENSION [None]
  - EPISTAXIS [None]
  - INFLUENZA LIKE ILLNESS [None]
  - MENTAL IMPAIRMENT [None]
  - PNEUMONIA PRIMARY ATYPICAL [None]
